FAERS Safety Report 4270981-8 (Version None)
Quarter: 2004Q1

REPORT INFORMATION
  Report Type: 
  Country: None (occurrence: None)
  Receive Date: 20040114
  Receipt Date: 20031202
  Transmission Date: 20041129
  Serious: Yes (Disabling)
  Sender: FDA-Public Use
  Company Number: WAES 0312USA00355

PATIENT
  Age: 41 Year
  Sex: Male
  Weight: 53 kg

DRUGS (4)
  1. ATENOLOL [Suspect]
     Dates: end: 20030101
  2. HYDRODIURIL [Suspect]
     Route: 048
     Dates: end: 20030101
  3. ACIPHEX [Suspect]
     Dates: end: 20030101
  4. ZOCOR [Suspect]
     Indication: HYPERCHOLESTEROLAEMIA
     Route: 048
     Dates: end: 20030101

REACTIONS (4)
  - CHILLS [None]
  - FULL BLOOD COUNT ABNORMAL [None]
  - NIGHT SWEATS [None]
  - PYREXIA [None]
